FAERS Safety Report 5456892-0 (Version None)
Quarter: 2007Q3

REPORT INFORMATION
  Report Type: 
  Country: None (occurrence: None)
  Receive Date: 20070918
  Receipt Date: 20061128
  Transmission Date: 20080115
  Serious: No
  Sender: FDA-Public Use
  Company Number: US-ASTRAZENECA-2006UW26552

PATIENT
  Age: 38 Year
  Sex: Female
  Weight: 86.2 kg

DRUGS (5)
  1. SEROQUEL [Suspect]
     Indication: SLEEP DISORDER
     Route: 048
  2. BUSPAR [Concomitant]
     Route: 048
  3. ADDERALL 10 [Concomitant]
     Route: 048
  4. BENADRYL [Concomitant]
  5. ABILIFY [Concomitant]

REACTIONS (1)
  - FEMALE SEXUAL DYSFUNCTION [None]
